FAERS Safety Report 4461430-5 (Version None)
Quarter: 2004Q3

REPORT INFORMATION
  Report Type: 
  Country: None (occurrence: None)
  Receive Date: 20040928
  Receipt Date: 20040907
  Transmission Date: 20050211
  Serious: Yes (Hospitalization)
  Sender: FDA-Public Use
  Company Number: FR-MERCK-0409FRA00027B1

PATIENT
  Sex: Male

DRUGS (1)
  1. PROPECIA [Suspect]

REACTIONS (3)
  - EMBOLISM [None]
  - TESTICULAR YOLK SAC TUMOUR STAGE II [None]
  - TRANSMISSION OF DRUG VIA SEMEN [None]
